FAERS Safety Report 4530648-5 (Version None)
Quarter: 2004Q4

REPORT INFORMATION
  Report Type: 
  Country: None (occurrence: None)
  Receive Date: 20041217
  Receipt Date: 20041111
  Transmission Date: 20050328
  Serious: Yes (Other)
  Sender: FDA-Public Use
  Company Number: IE-ABBOTT-04P-229-0280382-00

PATIENT
  Age: 15 Year
  Sex: Male

DRUGS (4)
  1. EPILIM [Suspect]
     Indication: EPILEPSY
     Route: 048
     Dates: start: 20040505
  2. EPILIM [Suspect]
     Indication: DRUG USE FOR UNKNOWN INDICATION
     Dates: start: 19900101
  3. CLONAZEPAM [Concomitant]
     Indication: EPILEPSY
     Dates: start: 19991220
  4. ACETAMINOPHEN W/ CODEINE [Concomitant]
     Indication: DRUG USE FOR UNKNOWN INDICATION

REACTIONS (3)
  - CARDIAC ARREST [None]
  - COMA [None]
  - LOSS OF CONSCIOUSNESS [None]
